FAERS Safety Report 5188004-5 (Version None)
Quarter: 2006Q4

REPORT INFORMATION
  Report Type: 
  Country: None (occurrence: None)
  Receive Date: 20061214
  Receipt Date: 20061201
  Transmission Date: 20070319
  Serious: Yes (Life-Threatening, Hospitalization)
  Sender: FDA-Public Use
  Company Number: 061204-0001080

PATIENT
  Age: 9 Year
  Sex: Female

DRUGS (6)
  1. ASPARAGINASE (ASPARAGINASE) [Suspect]
     Indication: LEUKAEMIA
     Dosage: 1000 IU/M*82
     Dates: start: 20051123
  2. DECADRON [Suspect]
     Indication: LEUKAEMIA
     Dosage: 5.5 MG; BID; PO
     Route: 048
     Dates: start: 20051122, end: 20051129
  3. DOXORUBICIN HCL [Suspect]
     Indication: LEUKAEMIA
     Dosage: 27.5 MG;QW;IV
     Route: 042
     Dates: start: 20051122, end: 20051129
  4. POSACONAZOLE (NO PREF. NAME) [Suspect]
     Indication: FUNGAL INFECTION
     Dosage: ORAL
     Route: 048
     Dates: start: 20050614, end: 20051120
  5. POSACONAZOLE (NO PREF. NAME) [Suspect]
     Indication: FUNGAL INFECTION
     Dosage: ORAL
     Route: 048
     Dates: start: 20051202
  6. VINCRISTINE SULFATE [Suspect]
     Indication: LEUKAEMIA
     Dosage: 165 MG; QW; IV
     Route: 042
     Dates: start: 20051122, end: 20051129

REACTIONS (2)
  - BACTERIAL SEPSIS [None]
  - HYPOTENSION [None]
